FAERS Safety Report 4705206-X (Version None)
Quarter: 2005Q2

REPORT INFORMATION
  Report Type: 
  Country: None (occurrence: None)
  Receive Date: 20050628
  Receipt Date: 20050614
  Transmission Date: 20051028
  Serious: No
  Sender: FDA-Public Use
  Company Number: 11581

PATIENT
  Sex: Female

DRUGS (3)
  1. ATRACURIUM BESYLATE [Suspect]
     Dates: start: 20020531, end: 20050531
  2. FENTANYL [Suspect]
     Dates: start: 20050531, end: 20050531
  3. PROPOFOL [Suspect]
     Dates: start: 20050531, end: 20050531

REACTIONS (6)
  - ANAPHYLACTOID REACTION [None]
  - BRADYCARDIA [None]
  - BRONCHOSPASM [None]
  - HYPOTENSION [None]
  - TORSADE DE POINTES [None]
  - VENTRICULAR TACHYCARDIA [None]
